FAERS Safety Report 15436182 (Version 2)
Quarter: 2018Q4

REPORT INFORMATION
  Report Type: Report from Study
  Country: US (occurrence: US)
  Receive Date: 20180927
  Receipt Date: 20181011
  Transmission Date: 20190204
  Serious: Yes (Hospitalization)
  Sender: FDA-Public Use
  Company Number: US-EXELIXIS-CABO-18015648

PATIENT
  Age: 80 Year
  Sex: Male
  Weight: 67.12 kg

DRUGS (14)
  1. ENTRESTO [Concomitant]
     Active Substance: SACUBITRIL\VALSARTAN
  2. CRESTOR [Concomitant]
     Active Substance: ROSUVASTATIN CALCIUM
  3. MIRALAX [Concomitant]
     Active Substance: POLYETHYLENE GLYCOL 3350
  4. ASPIRIN EC [Concomitant]
     Active Substance: ASPIRIN
  5. CABOMETYX [Suspect]
     Active Substance: CABOZANTINIB S-MALATE
     Indication: RENAL CANCER
     Dosage: 60 MG, QD
     Route: 048
     Dates: start: 20180806, end: 20180917
  6. TYLENOL EXTRA STRENGTH [Concomitant]
     Active Substance: ACETAMINOPHEN
  7. OCUVITE [Concomitant]
     Active Substance: VITAMINS
  8. LASIX [Concomitant]
     Active Substance: FUROSEMIDE
  9. ELIQUIS [Concomitant]
     Active Substance: APIXABAN
  10. ANTACIDS [Concomitant]
     Active Substance: UNSPECIFIED INGREDIENT
     Dosage: UNK
  11. VITAMIN D3 [Concomitant]
     Active Substance: CHOLECALCIFEROL
  12. ISOSORBID DINITRATE [Concomitant]
     Active Substance: ISOSORBIDE DINITRATE
  13. COREG [Concomitant]
     Active Substance: CARVEDILOL
  14. VITAMIN B12 [Concomitant]
     Active Substance: CYANOCOBALAMIN

REACTIONS (7)
  - Anxiety [Recovering/Resolving]
  - Depression [Recovering/Resolving]
  - Constipation [Recovering/Resolving]
  - Weight decreased [Recovering/Resolving]
  - Glossodynia [Recovering/Resolving]
  - White blood cell count decreased [Recovering/Resolving]
  - Cholecystitis [Recovering/Resolving]

NARRATIVE: CASE EVENT DATE: 2018
